FAERS Safety Report 4830625-0 (Version None)
Quarter: 2005Q4

REPORT INFORMATION
  Report Type: 
  Country: None (occurrence: None)
  Receive Date: 20051114
  Receipt Date: 20051103
  Transmission Date: 20060501
  Serious: Yes (Other)
  Sender: FDA-Public Use
  Company Number: BR-2005-023404

PATIENT
  Age: 19 Year
  Sex: Female

DRUGS (1)
  1. YASMIN [Suspect]
     Dosage: 1 TAB(S), OTHER, ORAL
     Route: 048
     Dates: start: 20041101, end: 20050701

REACTIONS (5)
  - ABORTION THREATENED [None]
  - DRUG ADMINISTRATION ERROR [None]
  - PREGNANCY ON ORAL CONTRACEPTIVE [None]
  - PREMATURE SEPARATION OF PLACENTA [None]
  - TREATMENT NONCOMPLIANCE [None]
